FAERS Safety Report 26025076 (Version 1)
Quarter: 2025Q4

REPORT INFORMATION
  Report Type: Other
  Country: CA (occurrence: CA)
  Receive Date: 20251111
  Receipt Date: 20251111
  Transmission Date: 20260117
  Serious: Yes (Other)
  Sender: INTERCEPT PHARMACEUTICALS
  Company Number: CA-INTERCEPT-PM2022001310

PATIENT
  Age: 85 Year
  Sex: Female

DRUGS (12)
  1. OCALIVA [Suspect]
     Active Substance: OBETICHOLIC ACID
     Indication: Primary biliary cholangitis
     Dosage: 5 MG, QD (STOPPED IN MAY)
     Dates: start: 202010
  2. OCALIVA [Suspect]
     Active Substance: OBETICHOLIC ACID
     Dosage: 5 MG, QD
     Dates: start: 20210113
  3. OCALIVA [Suspect]
     Active Substance: OBETICHOLIC ACID
     Dosage: 30 MG, WEEKLY (2 TABLET(S) THREE TIMES/WEEK X 3 MTH30)
     Dates: start: 2022, end: 2022
  4. OCALIVA [Suspect]
     Active Substance: OBETICHOLIC ACID
     Dosage: 5 MG, QIW (5 MILLIGRAM, FOUR TIMES/WEEK X 3 MTH30 OTHER DAYS)
  5. OCALIVA [Suspect]
     Active Substance: OBETICHOLIC ACID
     Dosage: 5 MG
  6. OCALIVA [Suspect]
     Active Substance: OBETICHOLIC ACID
     Dosage: 10 MG, TIW (3X/WEEK)
  7. OCALIVA [Suspect]
     Active Substance: OBETICHOLIC ACID
     Dosage: 5 MG, QOD
     Dates: start: 20230616
  8. OCALIVA [Suspect]
     Active Substance: OBETICHOLIC ACID
     Dosage: 10 MG, QD (2 TABLETS QD X 3 MTH 30)
  9. OCALIVA [Suspect]
     Active Substance: OBETICHOLIC ACID
     Dosage: UNK 10 MG, 3X/WEEK AND 5MG QOD
  10. OCALIVA [Suspect]
     Active Substance: OBETICHOLIC ACID
     Dosage: 10 MG, QD (MAINTAINENCE) (90 DAY(S))
  11. BEZAFIBRATE [Concomitant]
     Active Substance: BEZAFIBRATE
     Indication: Product used for unknown indication
     Dosage: UNK
  12. BEZAFIBRATE [Concomitant]
     Active Substance: BEZAFIBRATE
     Dosage: UNK

REACTIONS (7)
  - Hepatic fibrosis [Unknown]
  - Blood alkaline phosphatase abnormal [Recovering/Resolving]
  - Pruritus [Recovered/Resolved]
  - Drug ineffective [Unknown]
  - Product distribution issue [Unknown]
  - Off label use [Unknown]
  - Product dose omission issue [Unknown]

NARRATIVE: CASE EVENT DATE: 20220907
